FAERS Safety Report 5100631-X (Version None)
Quarter: 2006Q3

REPORT INFORMATION
  Report Type: 
  Country: None (occurrence: None)
  Receive Date: 20060906
  Receipt Date: 20060823
  Transmission Date: 20061208
  Serious: Yes (Death)
  Sender: FDA-Public Use
  Company Number: B0436483A

PATIENT
  Age: 48 Year
  Sex: Male

DRUGS (7)
  1. THIOGUANINE [Suspect]
     Indication: ACUTE MYELOID LEUKAEMIA
  2. CYTARABINE [Suspect]
     Indication: ACUTE MYELOID LEUKAEMIA
  3. MITOXANTRONE [Suspect]
     Indication: ACUTE MYELOID LEUKAEMIA
  4. DAUNORUBICIN HCL [Suspect]
     Indication: ACUTE MYELOID LEUKAEMIA
  5. FLUDARABINE PHOSPHATE [Concomitant]
  6. IDARUBICIN HCL [Concomitant]
  7. ETOPOSIDE [Concomitant]

REACTIONS (4)
  - ACUTE MYELOID LEUKAEMIA RECURRENT [None]
  - ALLOGENIC BONE MARROW TRANSPLANTATION THERAPY [None]
  - STAPHYLOCOCCAL SEPSIS [None]
  - TRANSPLANT FAILURE [None]
